FAERS Safety Report 7918349-4 (Version None)
Quarter: 2011Q4

REPORT INFORMATION
  Report Type: 
  Country: None (occurrence: None)
  Receive Date: 20111116
  Receipt Date: 20111116
  Transmission Date: 20120403
  Serious: Yes (Death, Life-Threatening, Hospitalization)
  Sender: FDA-Public Use
  Company Number: GB-PFIZER INC-2007095262

PATIENT
  Age: 47 Year
  Sex: Female

DRUGS (4)
  1. LEVOTHYROXINE SODIUM [Concomitant]
     Route: 048
     Dates: start: 20000904
  2. PREMPAK-C [Concomitant]
     Route: 048
     Dates: start: 20011029
  3. SOMATROPIN [Suspect]
     Indication: HYPOPITUITARISM
  4. PREDNISOLONE [Concomitant]
     Route: 048
     Dates: start: 20010122

REACTIONS (2)
  - CONFUSIONAL STATE [None]
  - DEATH [None]
